FAERS Safety Report 8779283 (Version 4)
Quarter: 2013Q3

REPORT INFORMATION
  Report Type: Spontaneous
  Country: DK (occurrence: DK)
  Receive Date: 20120911
  Receipt Date: 20130717
  Transmission Date: 20140515
  Serious: Yes (Hospitalization)
  Sender: FDA-Public Use
  Company Number: DK-ELI_LILLY_AND_COMPANY-DK201209000230

PATIENT
  Age: 49 Year
  Sex: Male
  Weight: 90 kg

DRUGS (6)
  1. ALIMTA [Suspect]
     Indication: NON-SMALL CELL LUNG CANCER
     Dosage: 950 MG, UNKNOWN
     Route: 042
     Dates: start: 20120814, end: 20120814
  2. TARCEVA [Concomitant]
  3. LOSARTAN POTASSIUM [Concomitant]
     Dosage: 12.5 MG, UNK
  4. HYDROCHLOROTHIAZIDE [Concomitant]
  5. FOLIC ACID [Concomitant]
  6. VITAMIN B12 [Concomitant]

REACTIONS (5)
  - Hepatitis acute [Recovered/Resolved]
  - Pyrexia [Recovered/Resolved]
  - Malaise [Recovered/Resolved]
  - Hypotension [Unknown]
  - Ocular icterus [Unknown]
